FAERS Safety Report 7431992-4 (Version None)
Quarter: 2011Q2

REPORT INFORMATION
  Report Type: 
  Country: None (occurrence: None)
  Receive Date: 20110422
  Receipt Date: 20110418
  Transmission Date: 20111010
  Serious: Yes (Hospitalization)
  Sender: FDA-Public Use
  Company Number: US-B.I. PHARMACEUTICALS,INC./RIDGEFIELD-2011-BP-01342BP

PATIENT
  Age: 78 Year
  Sex: Female
  Weight: 78.93 kg

DRUGS (1)
  1. PRADAXA [Suspect]
     Indication: ATRIAL FIBRILLATION
     Dosage: 150 MG
     Dates: start: 20101201, end: 20110115

REACTIONS (8)
  - HAEMORRHAGE [None]
  - LOWER GASTROINTESTINAL HAEMORRHAGE [None]
  - ARTERIOVENOUS MALFORMATION [None]
  - RECTAL HAEMORRHAGE [None]
  - URINARY TRACT INFECTION [None]
  - ANAEMIA [None]
  - RENAL FAILURE [None]
  - COAGULOPATHY [None]
